FAERS Safety Report 12219396 (Version 2)
Quarter: 2016Q2

REPORT INFORMATION
  Report Type: Spontaneous
  Country: JP (occurrence: JP)
  Receive Date: 20160329
  Receipt Date: 20160428
  Transmission Date: 20160815
  Serious: Yes (Disabling, Other)
  Sender: FDA-Public Use
  Company Number: JP-GILEAD-2016-0205240

PATIENT
  Age: 60 Year
  Sex: Male

DRUGS (6)
  1. LUPRAC [Concomitant]
     Active Substance: TORSEMIDE
     Indication: HYPERTENSION
     Route: 048
  2. ARTIST [Concomitant]
     Active Substance: CARVEDILOL
     Indication: HYPERTENSION
     Route: 048
  3. URSO [Concomitant]
     Active Substance: URSODIOL
     Indication: HEPATIC CIRRHOSIS
     Route: 048
     Dates: start: 200006
  4. HEPSERA [Suspect]
     Active Substance: ADEFOVIR DIPIVOXIL
     Indication: HEPATIC CIRRHOSIS
     Dosage: 10 MG, QD
     Route: 048
     Dates: start: 200301, end: 20061121
  5. ZEFIX [Concomitant]
     Active Substance: LAMIVUDINE
     Indication: HEPATIC CIRRHOSIS
     Dosage: 100 MG, QD
     Route: 048
     Dates: start: 200006, end: 20061121
  6. HEPSERA [Suspect]
     Active Substance: ADEFOVIR DIPIVOXIL
     Dosage: UNK
     Route: 048

REACTIONS (7)
  - Back pain [Unknown]
  - Blood alkaline phosphatase increased [Unknown]
  - Hypophosphataemia [Recovering/Resolving]
  - Arthralgia [Unknown]
  - Renal tubular disorder [Unknown]
  - Gait disturbance [Unknown]
  - Osteomalacia [Unknown]

NARRATIVE: CASE EVENT DATE: 200609
